FAERS Safety Report 6307022-4 (Version None)
Quarter: 2009Q3

REPORT INFORMATION
  Report Type: 
  Country: None (occurrence: None)
  Receive Date: 20090812
  Receipt Date: 20090803
  Transmission Date: 20100115
  Serious: Yes (Hospitalization)
  Sender: FDA-Public Use
  Company Number: PHHY2009JP32946

PATIENT
  Age: 77 Year
  Sex: Male

DRUGS (5)
  1. DIOVAN [Suspect]
     Dosage: UNK
     Route: 048
     Dates: start: 20040101
  2. MEVALOTIN [Concomitant]
     Route: 048
  3. TAKEPRON [Concomitant]
     Route: 048
  4. DEPAS [Concomitant]
     Route: 048
  5. BUFFERIN [Concomitant]
     Dosage: 81 MG, UNK
     Route: 048

REACTIONS (3)
  - EATING DISORDER [None]
  - HEPATIC FUNCTION ABNORMAL [None]
  - HYPONATRAEMIA [None]
